FAERS Safety Report 13440000 (Version 2)
Quarter: 2017Q3

REPORT INFORMATION
  Report Type: Report from Study
  Country: NL (occurrence: NL)
  Receive Date: 20170413
  Receipt Date: 20170807
  Transmission Date: 20171127
  Serious: Yes (Other)
  Sender: FDA-Public Use
  Company Number: NL-ROCHE-1918885

PATIENT
  Sex: Male

DRUGS (6)
  1. LEUKERAN [Suspect]
     Active Substance: CHLORAMBUCIL
     Indication: CHRONIC LYMPHOCYTIC LEUKAEMIA
     Dosage: MOST RECENT DOSE PRIOR TO SAE: 19/OCT/2014
     Route: 065
     Dates: start: 20140915
  2. LEUKERAN [Suspect]
     Active Substance: CHLORAMBUCIL
     Route: 065
     Dates: start: 201602
  3. LENALIDOMIDE [Suspect]
     Active Substance: LENALIDOMIDE
     Indication: CHRONIC LYMPHOCYTIC LEUKAEMIA
     Dosage: MOST RECENT DOSE PRIOR TO SAE: 20/OCT/2014
     Route: 065
     Dates: start: 20140924
  4. RITUXIMAB. [Suspect]
     Active Substance: RITUXIMAB
     Indication: CHRONIC LYMPHOCYTIC LEUKAEMIA
     Dosage: MOST RECENT DOSE PRIOR TO SAE: 13/OCT/2014
     Route: 065
     Dates: start: 20140915
  5. LEUKERAN [Concomitant]
     Active Substance: CHLORAMBUCIL
  6. LEUKERAN [Suspect]
     Active Substance: CHLORAMBUCIL
     Dosage: FOR 7 DAYS
     Route: 065
     Dates: start: 20160831

REACTIONS (1)
  - Squamous cell carcinoma [Unknown]

NARRATIVE: CASE EVENT DATE: 20150710
